FAERS Safety Report 17330339 (Version 2)
Quarter: 2020Q2

REPORT INFORMATION
  Report Type: Spontaneous
  Country: US (occurrence: US)
  Receive Date: 20200128
  Receipt Date: 20200604
  Transmission Date: 20200713
  Serious: No
  Sender: FDA-Public Use
  Company Number: US-PFIZER INC-2020039242

PATIENT
  Age: 71 Year
  Sex: Female

DRUGS (1)
  1. METHOTREXATE SODIUM. [Suspect]
     Active Substance: METHOTREXATE SODIUM
     Dosage: 0.8 ML, WEEKLY (50 MG/2ML)

REACTIONS (7)
  - Influenza [Unknown]
  - Malaise [Unknown]
  - Hot flush [Unknown]
  - Abdominal discomfort [Unknown]
  - Fatigue [Unknown]
  - Drug ineffective [Unknown]
  - Feeling abnormal [Unknown]
